FAERS Safety Report 24728771 (Version 1)
Quarter: 2024Q4

REPORT INFORMATION
  Report Type: Spontaneous
  Country: CN (occurrence: CN)
  Receive Date: 20241212
  Receipt Date: 20241212
  Transmission Date: 20250114
  Serious: Yes (Life-Threatening, Hospitalization, Other)
  Sender: BEIGENE
  Company Number: CN-BEIGENE-BGN-2024-020047

PATIENT

DRUGS (2)
  1. TISLELIZUMAB [Suspect]
     Active Substance: TISLELIZUMAB
     Indication: Lung neoplasm malignant
     Dosage: 200 MILLIGRAM
     Route: 041
     Dates: start: 20241122
  2. SODIUM CHLORIDE [Concomitant]
     Active Substance: SODIUM CHLORIDE
     Indication: Vehicle solution use
     Dosage: 100 MILLILITER
     Route: 041
     Dates: start: 20241122

REACTIONS (6)
  - Heart rate increased [Recovering/Resolving]
  - Atrial fibrillation [Unknown]
  - Atrial flutter [Unknown]
  - Supraventricular extrasystoles [Unknown]
  - Atrial tachycardia [Unknown]
  - Nodal rhythm [Unknown]

NARRATIVE: CASE EVENT DATE: 20241122
